FAERS Safety Report 7273357-4 (Version None)
Quarter: 2011Q1

REPORT INFORMATION
  Report Type: 
  Country: None (occurrence: None)
  Receive Date: 20110203
  Receipt Date: 20100824
  Transmission Date: 20110831
  Serious: No
  Sender: FDA-Public Use
  Company Number: US-ABBOTT-10P-163-0666965-00

PATIENT
  Sex: Female
  Weight: 60.382 kg

DRUGS (5)
  1. PREDNISONE [Concomitant]
     Indication: RHEUMATOID ARTHRITIS
  2. SYNTHROID [Suspect]
     Indication: HYPOTHYROIDISM
  3. THYROID TAB [Concomitant]
     Indication: PRODUCT USED FOR UNKNOWN INDICATION
  4. PROTRIPTYLINE [Concomitant]
     Indication: DEPRESSION
  5. ESTRODIAL [Concomitant]
     Indication: HOT FLUSH

REACTIONS (3)
  - ACTIVITIES OF DAILY LIVING IMPAIRED [None]
  - RHEUMATOID ARTHRITIS [None]
  - DRUG INEFFECTIVE [None]
